FAERS Safety Report 9927473 (Version 2)
Quarter: 2014Q2

REPORT INFORMATION
  Report Type: Spontaneous
  Country: BR (occurrence: BR)
  Receive Date: 20140227
  Receipt Date: 20140501
  Transmission Date: 20141212
  Serious: Yes (Hospitalization, Other)
  Sender: FDA-Public Use
  Company Number: PHHY2014BR023170

PATIENT
  Sex: Female
  Weight: 90 kg

DRUGS (1)
  1. DIOVAN HCT [Suspect]
     Indication: HYPERTENSION
     Dosage: 1 DF (320/UNK MG), DAILY
     Route: 048

REACTIONS (5)
  - Heart rate decreased [Unknown]
  - Blood pressure decreased [Recovered/Resolved]
  - Parkinson^s disease [Not Recovered/Not Resolved]
  - Dizziness [Recovered/Resolved]
  - Cold sweat [Recovered/Resolved]
